FAERS Safety Report 13813629 (Version 3)
Quarter: 2017Q3

REPORT INFORMATION
  Report Type: Report from Study
  Country: US (occurrence: US)
  Receive Date: 20170731
  Receipt Date: 20170829
  Transmission Date: 20171127
  Serious: Yes (Death)
  Sender: FDA-Public Use
  Company Number: US-ROCHE-1971401

PATIENT
  Age: 74 Year
  Sex: Male

DRUGS (2)
  1. AVASTIN [Suspect]
     Active Substance: BEVACIZUMAB
     Indication: COLON CANCER
     Dosage: LAST TREATMENT WAS ON 25/APR/2017
     Route: 042
     Dates: start: 20160907
  2. AVASTIN [Suspect]
     Active Substance: BEVACIZUMAB
     Route: 042
     Dates: start: 20170425, end: 20170425

REACTIONS (1)
  - Death [Fatal]

NARRATIVE: CASE EVENT DATE: 20170528
